FAERS Safety Report 9266412 (Version 3)
Quarter: 2013Q2

REPORT INFORMATION
  Report Type: Spontaneous
  Country: BD (occurrence: BD)
  Receive Date: 20130502
  Receipt Date: 20130603
  Transmission Date: 20140414
  Serious: Yes (Hospitalization, Other)
  Sender: FDA-Public Use
  Company Number: BD-RANBAXY-2013RR-68366

PATIENT
  Sex: Male

DRUGS (5)
  1. CEFUROXIME [Suspect]
     Indication: MATERNAL EXPOSURE DURING PREGNANCY
     Dosage: 500 MG, BID
     Route: 064
  2. CEFUROXIME [Suspect]
     Indication: MATERNAL EXPOSURE TIMING UNSPECIFIED
     Dosage: 500 MG, BID
     Route: 063
  3. CEFUROXIME [Suspect]
     Indication: MATERNAL EXPOSURE TIMING UNSPECIFIED
     Dosage: 500 MG, TID
     Route: 063
  4. NITAZOXANIDE [Concomitant]
     Indication: DIARRHOEA
     Route: 065
  5. COTRIM [Concomitant]
     Indication: DIARRHOEA
     Route: 065

REACTIONS (4)
  - Drug eruption [Recovering/Resolving]
  - Foetal exposure during pregnancy [Unknown]
  - Diarrhoea [Unknown]
  - Restlessness [Unknown]
